FAERS Safety Report 4284161-3 (Version None)
Quarter: 2004Q1

REPORT INFORMATION
  Report Type: 
  Country: None (occurrence: None)
  Receive Date: 20040203
  Receipt Date: 20040122
  Transmission Date: 20041129
  Serious: Yes (Other)
  Sender: FDA-Public Use
  Company Number: UA-GLAXOSMITHKLINE-B0320700A

PATIENT
  Age: 55 Year
  Sex: Female

DRUGS (2)
  1. ROSIGLITAZONE MALEATE [Suspect]
     Dosage: 4MG PER DAY
     Route: 048
     Dates: start: 20030108
  2. MANINIL [Concomitant]
     Dosage: 10.5MG PER DAY
     Route: 048
     Dates: start: 20001201

REACTIONS (1)
  - BREAST CANCER [None]
